FAERS Safety Report 4279818-4 (Version None)
Quarter: 2004Q1

REPORT INFORMATION
  Report Type: 
  Country: None (occurrence: None)
  Receive Date: 20040123
  Receipt Date: 20040114
  Transmission Date: 20041129
  Serious: Yes (Other)
  Sender: FDA-Public Use
  Company Number: 200410151GDS

PATIENT
  Age: 29 Year
  Sex: Female

DRUGS (3)
  1. APROTININ [Suspect]
     Indication: HAEMORRHAGE
  2. ANTI-HISTAMINE TAB [Concomitant]
  3. CORTICOSTEROIDS [Concomitant]

REACTIONS (6)
  - ANAEMIA [None]
  - ARTERIAL THROMBOSIS [None]
  - CAESAREAN SECTION [None]
  - HYPERSENSITIVITY [None]
  - POSTPARTUM HAEMORRHAGE [None]
  - PREGNANCY [None]
